FAERS Safety Report 8594772 (Version 4)
Quarter: 2013Q4

REPORT INFORMATION
  Report Type: Spontaneous
  Country: US (occurrence: US)
  Receive Date: 20120604
  Receipt Date: 20131106
  Transmission Date: 20140711
  Serious: Yes (Hospitalization, Disabling)
  Sender: FDA-Public Use
  Company Number: US-009507513-1205USA05360

PATIENT
  Sex: Male

DRUGS (1)
  1. FOSAMAX PLUS D [Suspect]
     Indication: OSTEOPOROSIS
     Dosage: UNK IU, UNK
     Route: 048

REACTIONS (5)
  - Femur fracture [Unknown]
  - Musculoskeletal discomfort [Unknown]
  - Surgery [Unknown]
  - Pain [Unknown]
  - Memory impairment [Unknown]
